FAERS Safety Report 8954403 (Version 1)
Quarter: 2012Q4

REPORT INFORMATION
  Report Type: 
  Country: AU (occurrence: AU)
  Receive Date: 20121210
  Receipt Date: 20121210
  Transmission Date: 20130627
  Serious: Yes (Other)
  Sender: FDA-Public Use
  Company Number: PHHY2012AU112482

PATIENT
  Age: 67 Year
  Sex: Female

DRUGS (1)
  1. ACLASTA [Suspect]
     Dosage: UNK
     Route: 042

REACTIONS (3)
  - Chest pain [Unknown]
  - Chills [Unknown]
  - Myalgia [Unknown]
